FAERS Safety Report 5355607-4 (Version None)
Quarter: 2007Q2

REPORT INFORMATION
  Report Type: 
  Country: None (occurrence: None)
  Receive Date: 20070613
  Receipt Date: 20070608
  Transmission Date: 20071010
  Serious: Yes (Other)
  Sender: FDA-Public Use
  Company Number: A0655135A

PATIENT
  Sex: Male

DRUGS (1)
  1. AVANDIA [Suspect]
     Indication: PSORIASIS
     Route: 048

REACTIONS (2)
  - PSORIASIS [None]
  - THERAPEUTIC RESPONSE UNEXPECTED [None]
